FAERS Safety Report 8399541-4 (Version None)
Quarter: 2012Q1

REPORT INFORMATION
  Report Type: 
  Country: None (occurrence: None)
  Receive Date: 20120323
  Receipt Date: 20110718
  Transmission Date: 20120608
  Serious: Yes (Other)
  Sender: FDA-Public Use
  Company Number: 163-21880-11072210

PATIENT
  Age: 71 Year
  Sex: Male
  Weight: 85.7298 kg

DRUGS (8)
  1. REVLIMID [Suspect]
     Indication: MULTIPLE MYELOMA
     Dosage: 25 MG, QD X 21/7, PO
     Route: 048
     Dates: start: 20110603
  2. DEXAMETHASONE [Concomitant]
  3. COUMADIN [Concomitant]
  4. COREG (CARVEDILOL) (UNKNOWN) [Concomitant]
  5. ASPIRIN [Concomitant]
  6. PRAVASTATIN [Concomitant]
  7. VELCADE [Concomitant]
  8. IRON (IRON) (UNKNOWN) [Concomitant]

REACTIONS (1)
  - THROMBOSIS [None]
